FAERS Safety Report 14967330 (Version 1)
Quarter: 2018Q3

REPORT INFORMATION
  Report Type: Report from Study
  Country: AU (occurrence: AU)
  Receive Date: 20180604
  Receipt Date: 20180604
  Transmission Date: 20181010
  Serious: Yes (Death, Hospitalization)
  Sender: FDA-Public Use
  Company Number: AU-CHEPLA-C20180105

PATIENT
  Age: 73 Year
  Sex: Male
  Weight: 85 kg

DRUGS (4)
  1. IMG?7289 [Suspect]
     Active Substance: INVESTIGATIONAL PRODUCT
     Dosage: 500 MG, QD?6 MG/KG/D
     Route: 048
     Dates: start: 20171031, end: 20171104
  2. ALL?TRANS RETINOIC ACID [Suspect]
     Active Substance: TRETINOIN
     Indication: NEOPLASM
     Dosage: 90MG, QD?45 MG/M^2
     Route: 048
     Dates: start: 20171017, end: 20180122
  3. IMG?7289 [Suspect]
     Active Substance: INVESTIGATIONAL PRODUCT
     Indication: NEOPLASM
     Dosage: 500 MG, QD?6 MG/KG/D
     Route: 048
     Dates: start: 20171017, end: 20171022
  4. ALL?TRANS RETINOIC ACID [Suspect]
     Active Substance: TRETINOIN
     Dosage: 90MG, QD?45 MG/M^2
     Route: 048
     Dates: start: 20171031, end: 20171102

REACTIONS (8)
  - Neutropenic sepsis [Recovered/Resolved]
  - Product use in unapproved indication [Recovered/Resolved]
  - Atrial flutter [None]
  - Platelet count decreased [None]
  - Tachypnoea [None]
  - Infection [None]
  - Acute myeloid leukaemia [None]
  - Lung consolidation [None]

NARRATIVE: CASE EVENT DATE: 20171023
